FAERS Safety Report 8473538-8 (Version None)
Quarter: 2012Q2

REPORT INFORMATION
  Report Type: 
  Country: None (occurrence: None)
  Receive Date: 20120628
  Receipt Date: 20120622
  Transmission Date: 20120825
  Serious: Yes (Death, Other)
  Sender: FDA-Public Use
  Company Number: US-BAYER-201018518NA

PATIENT
  Age: 14 Year
  Sex: Male
  Weight: 48.8 kg

DRUGS (26)
  1. TRASYLOL [Suspect]
     Indication: ECHOCARDIOGRAM
     Dosage: 200 ML LOADING DOSE
     Route: 042
     Dates: start: 20030807, end: 20030808
  2. MILRINONE LACTATE [Concomitant]
     Dosage: 0.5-75MCG/KG/MIN
     Route: 042
     Dates: start: 20030807
  3. EPINEPHRINE [Concomitant]
     Dosage: UNK
  4. ANCEF [Concomitant]
     Dosage: 2 G, UNK
     Route: 042
     Dates: start: 20030807, end: 20030807
  5. VANCOMYCIN [Concomitant]
     Dosage: 1 G, UNK
     Route: 042
     Dates: start: 20030807, end: 20030807
  6. HEPARIN [Concomitant]
     Dosage: 100-500 UNITS/CC
     Route: 042
     Dates: start: 20030806
  7. TRASYLOL [Suspect]
     Indication: VENTRICULAR ASSIST DEVICE INSERTION
     Dosage: 200 ML, CARDIOPULMONARY BYPASS PRIME
     Route: 042
     Dates: start: 20030807, end: 20030808
  8. DIPHENHYDRAMINE HCL [Concomitant]
     Dosage: 45 MG, UNK
     Route: 042
     Dates: start: 20030806
  9. CONTRAST MEDIA [Concomitant]
     Indication: CATHETERISATION CARDIAC
     Dosage: UNK
     Dates: start: 20030807
  10. MIDAZOLAM [Concomitant]
     Dosage: 10 MG, UNK
     Route: 042
     Dates: start: 20030807, end: 20030807
  11. FENTANYL [Concomitant]
     Dosage: 20 ML, UNK
     Route: 042
     Dates: start: 20030807, end: 20030807
  12. MANNITOL [Concomitant]
     Dosage: 12.5 G, BYPASS
     Dates: start: 20030807, end: 20030807
  13. EPINEPHRINE [Concomitant]
     Dosage: 10-50 MCG
     Route: 042
     Dates: start: 20030807
  14. ACETAMINOPHEN [Concomitant]
     Dosage: 600 MG, UNK
     Route: 048
     Dates: start: 20030806
  15. TRASYLOL [Suspect]
     Dosage: 50 ML/HOUR INFUSION
     Route: 042
     Dates: start: 20030807, end: 20030808
  16. LASIX [Concomitant]
     Dosage: 30-45 MG
     Route: 042
     Dates: start: 20030806
  17. NOREPINEPHRINE [Concomitant]
     Dosage: 4 MG, UNK
     Route: 042
     Dates: start: 20030806
  18. CARDIZEM [Concomitant]
     Dosage: 3-6 MG
     Route: 042
     Dates: start: 20030806
  19. FORANE [Concomitant]
     Dosage: UNK
     Route: 045
     Dates: start: 20030807, end: 20030807
  20. ALBUMIN [Concomitant]
     Dosage: 100 ML, BYPASS
     Dates: start: 20030807, end: 20030807
  21. HEPARIN [Concomitant]
     Dosage: 30000 U, UNK
     Route: 042
     Dates: start: 20030807, end: 20030807
  22. NITROGLYCERIN [Concomitant]
     Dosage: UNK
     Route: 042
     Dates: start: 20030806
  23. FRESH FROZEN PLASMA [Concomitant]
     Dosage: 1500 ML, UNK
     Route: 042
  24. DOPAMINE HCL [Concomitant]
     Dosage: 4-8 MCG/KG/MINUTE
     Route: 042
     Dates: start: 20030807
  25. LEVOPHED [Concomitant]
     Dosage: 10 ML, UNK
     Dates: start: 20030806
  26. IMMUNE GLOBULIN NOS [Concomitant]
     Dosage: UNK
     Route: 042
     Dates: start: 20030806

REACTIONS (7)
  - CEREBRAL HAEMORRHAGE [None]
  - HEPATIC FAILURE [None]
  - RESPIRATORY FAILURE [None]
  - DEATH [None]
  - RENAL FAILURE [None]
  - INJURY [None]
  - PAIN [None]
